FAERS Safety Report 9527095 (Version 6)
Quarter: 2014Q2

REPORT INFORMATION
  Report Type: Spontaneous
  Country: US (occurrence: US)
  Receive Date: 20130916
  Receipt Date: 20140602
  Transmission Date: 20141212
  Serious: Yes (Hospitalization, Other)
  Sender: FDA-Public Use
  Company Number: US-009507513-1309USA006821

PATIENT
  Sex: Female
  Weight: 56.69 kg

DRUGS (11)
  1. FOSAMAX [Suspect]
     Indication: OSTEOPOROSIS PROPHYLAXIS
     Dosage: UNK
     Route: 048
     Dates: start: 19951101
  2. FOSAMAX [Suspect]
     Dosage: 70 MG, UNK
     Route: 048
     Dates: end: 20060917
  3. VITAMINS (UNSPECIFIED) [Concomitant]
     Dosage: UNK
     Dates: start: 1990
  4. CALCIUM (UNSPECIFIED) [Concomitant]
     Dosage: UNK
     Dates: start: 1990
  5. VITAMIN D (UNSPECIFIED) [Concomitant]
     Dosage: UNK
     Dates: start: 1990
  6. ASCORBIC ACID [Concomitant]
     Dosage: UNK
     Dates: start: 1990
  7. MAGNESIUM (UNSPECIFIED) [Concomitant]
     Dosage: UNK
     Dates: start: 1990
  8. HORMONES (UNSPECIFIED) [Concomitant]
     Indication: HORMONE REPLACEMENT THERAPY
     Dosage: UNK
     Dates: start: 1995, end: 2000
  9. SELECTIVE ESTROGEN RECEPTOR MODULATOR (UNSPECIFIED) [Concomitant]
     Indication: HORMONE REPLACEMENT THERAPY
     Dosage: UNK
     Dates: start: 1995, end: 2000
  10. CRESTOR [Concomitant]
     Indication: BLOOD CHOLESTEROL INCREASED
     Dosage: 5 MG, UNK
  11. SYNTHROID [Concomitant]
     Indication: HYPOTHYROIDISM
     Dosage: UNK

REACTIONS (31)
  - Femur fracture [Unknown]
  - Intramedullary rod insertion [Unknown]
  - Mastectomy [Unknown]
  - Breast cancer female [Unknown]
  - Bone cancer [Unknown]
  - Hypertension [Unknown]
  - Angiopathy [Unknown]
  - Scoliosis [Unknown]
  - Osteoarthritis [Unknown]
  - Osteoporosis [Unknown]
  - Osteopenia [Unknown]
  - Rib fracture [Recovering/Resolving]
  - Spinal compression fracture [Unknown]
  - Intervertebral disc degeneration [Unknown]
  - Pelvic pain [Unknown]
  - Bone scan abnormal [Unknown]
  - Body height decreased [Unknown]
  - Mitral valve prolapse [Unknown]
  - Drug intolerance [Unknown]
  - Compression fracture [Unknown]
  - Depression [Unknown]
  - Dyspnoea [Unknown]
  - Weight decreased [Unknown]
  - Insomnia [Unknown]
  - Upper respiratory tract infection [Unknown]
  - Fall [Unknown]
  - Kyphosis [Unknown]
  - Lumbar vertebral fracture [Unknown]
  - Pain in extremity [Unknown]
  - Pain in extremity [Unknown]
  - Gastritis [Unknown]
